FAERS Safety Report 25750516 (Version 1)
Quarter: 2025Q3

REPORT INFORMATION
  Report Type: Report from Study
  Country: US (occurrence: US)
  Receive Date: 20250902
  Receipt Date: 20250902
  Transmission Date: 20251020
  Serious: Yes (Death, Hospitalization)
  Sender: OTSUKA
  Company Number: US-MMM-Otsuka-B8R0ISOC

PATIENT
  Age: 84 Year
  Sex: Male

DRUGS (2)
  1. TOLVAPTAN [Suspect]
     Active Substance: TOLVAPTAN
     Indication: Hyponatraemia
     Dosage: 1.5 DF, QD (TAKES 1 AND 1/2 TABLETS)
     Route: 048
     Dates: start: 20231019
  2. TOLVAPTAN [Suspect]
     Active Substance: TOLVAPTAN
     Indication: Blood osmolarity decreased

REACTIONS (2)
  - Death [Fatal]
  - Pneumonia [Not Recovered/Not Resolved]

NARRATIVE: CASE EVENT DATE: 20250801
